FAERS Safety Report 12877854 (Version 3)
Quarter: 2016Q4

REPORT INFORMATION
  Report Type: Report from Study
  Country: CA (occurrence: CA)
  Receive Date: 20161024
  Receipt Date: 20161227
  Transmission Date: 20170207
  Serious: Yes (Hospitalization)
  Sender: FDA-Public Use
  Company Number: CA-JNJFOC-20160901360

PATIENT
  Age: 53 Year
  Sex: Male
  Weight: 81 kg

DRUGS (9)
  1. REMICADE [Suspect]
     Active Substance: INFLIXIMAB
     Indication: CROHN^S DISEASE
     Dosage: V2: REPORTED AS 5MG/KG ONCE EVERY 7 WEEKS.
     Route: 042
     Dates: start: 20070208
  2. BUPROPION. [Concomitant]
     Active Substance: BUPROPION
     Route: 065
  3. ROSUVASTATIN. [Concomitant]
     Active Substance: ROSUVASTATIN
     Dosage: 1 TAB EVERY OTHER DAY
     Route: 065
  4. RABEPRAZOLE [Concomitant]
     Active Substance: RABEPRAZOLE
     Dosage: DOSE: 20 UNITS UNSPECIFIED
     Route: 065
  5. QUETIAPINE. [Concomitant]
     Active Substance: QUETIAPINE
     Dosage: 1 TAB BID
     Route: 065
  6. MODAFINIL. [Concomitant]
     Active Substance: MODAFINIL
     Dosage: 1 TAB BID
     Route: 065
  7. IRON [Concomitant]
     Active Substance: IRON
     Route: 065
  8. CRESTOR [Concomitant]
     Active Substance: ROSUVASTATIN CALCIUM
     Dosage: 1 TAB EVERY OTHER DAY
     Route: 065
  9. AMITRIPTYLINE [Concomitant]
     Active Substance: AMITRIPTYLINE
     Route: 065

REACTIONS (3)
  - Intestinal obstruction [Unknown]
  - Iron deficiency [Not Recovered/Not Resolved]
  - Small intestinal stenosis [Not Recovered/Not Resolved]

NARRATIVE: CASE EVENT DATE: 2016
